FAERS Safety Report 6557170-9 (Version None)
Quarter: 2010Q1

REPORT INFORMATION
  Report Type: 
  Country: None (occurrence: None)
  Receive Date: 20100127
  Receipt Date: 20100127
  Transmission Date: 20100710
  Serious: No
  Sender: FDA-Public Use
  Company Number: None

PATIENT
  Age: 33 Year
  Sex: Male
  Weight: 86.1834 kg

DRUGS (1)
  1. CREST PRO-HEALTH CREST [Suspect]
     Indication: DENTAL DISORDER PROPHYLAXIS
     Dosage: 4 TEASPOON TWICE DAILY DENTAL
     Route: 004
     Dates: start: 20091002, end: 20091106

REACTIONS (2)
  - TOOTH DISCOLOURATION [None]
  - TOOTH INJURY [None]
